FAERS Safety Report 21701964 (Version 1)
Quarter: 2022Q4

REPORT INFORMATION
  Report Type: Spontaneous
  Country: US (occurrence: US)
  Receive Date: 20221208
  Receipt Date: 20221208
  Transmission Date: 20230112
  Serious: Yes (Hospitalization)
  Sender: FDA-Public Use
  Company Number: US-MYLANLABS-2022M1137079

PATIENT
  Age: 25 Year
  Sex: Male

DRUGS (1)
  1. LAMOTRIGINE [Suspect]
     Active Substance: LAMOTRIGINE
     Indication: Bipolar II disorder
     Dosage: UNK
     Route: 065

REACTIONS (3)
  - Tubulointerstitial nephritis [Recovered/Resolved]
  - Oliguria [Recovered/Resolved]
  - Granuloma [Recovered/Resolved]
